FAERS Safety Report 9257619 (Version 1)
Quarter: 2013Q2

REPORT INFORMATION
  Report Type: Spontaneous
  Country: US (occurrence: US)
  Receive Date: 20130426
  Receipt Date: 20130426
  Transmission Date: 20140414
  Serious: No
  Sender: FDA-Public Use
  Company Number: US-JNJFOC-20130407151

PATIENT
  Age: 62 Year
  Sex: Male
  Weight: 83.01 kg

DRUGS (4)
  1. DURAGESIC [Suspect]
     Indication: PAIN
     Route: 065
     Dates: start: 20130405
  2. MS CONTIN [Suspect]
     Indication: PAIN
     Route: 048
     Dates: start: 20130408
  3. MS CONTIN [Suspect]
     Indication: PAIN
     Route: 048
     Dates: end: 20130405
  4. NEURONTIN [Concomitant]
     Indication: NEURALGIA
     Route: 048
     Dates: start: 1999

REACTIONS (11)
  - Withdrawal syndrome [Recovered/Resolved]
  - Drug effect decreased [Unknown]
  - Wrong technique in drug usage process [Recovered/Resolved]
  - Headache [Recovering/Resolving]
  - Asthenia [Recovered/Resolved]
  - Dyspepsia [Recovering/Resolving]
  - Wrong technique in drug usage process [Unknown]
  - Pain [Unknown]
  - Drug administered at inappropriate site [Not Recovered/Not Resolved]
  - Breakthrough pain [Not Recovered/Not Resolved]
  - Head discomfort [Recovering/Resolving]
